FAERS Safety Report 13813505 (Version 1)
Quarter: 2017Q3

REPORT INFORMATION
  Report Type: Other
  Country: NL (occurrence: NL)
  Receive Date: 20170730
  Receipt Date: 20170730
  Transmission Date: 20171127
  Serious: Yes (Hospitalization)
  Sender: FDA-Public Use
  Company Number: NL-VALIDUS PHARMACEUTICALS LLC-NL-2017VAL001126

PATIENT
  Age: 52 Year
  Sex: Male

DRUGS (1)
  1. FUROSEMIDE. [Suspect]
     Active Substance: FUROSEMIDE
     Indication: PRODUCT USED FOR UNKNOWN INDICATION
     Dosage: 130 MILLIGRAM(S);UNKNOWN
     Route: 048
     Dates: start: 20170601, end: 20170603

REACTIONS (3)
  - Drug dispensing error [Unknown]
  - Renal impairment [Recovered/Resolved]
  - Withdrawal syndrome [Recovered/Resolved]

NARRATIVE: CASE EVENT DATE: 20170601
